FAERS Safety Report 13663303 (Version 1)
Quarter: 2017Q2

REPORT INFORMATION
  Report Type: Spontaneous
  Country: US (occurrence: US)
  Receive Date: 20170619
  Receipt Date: 20170619
  Transmission Date: 20170830
  Serious: Yes (Hospitalization, Other)
  Sender: FDA-Public Use
  Company Number: US-RECKITT BENCKISER HEALTHCARE INT LIMITED-RB-88277-2017

PATIENT
  Age: 30 Year
  Sex: Male

DRUGS (1)
  1. UNSPECIFIED DEXTROMETHORPHAN HYDROBROMIDE [Suspect]
     Active Substance: DEXTROMETHORPHAN HYDROBROMIDE
     Indication: DRUG USE DISORDER
     Dosage: DRANK APPROXIMATELY 944 MILLILITERS OF COUGH SYRUP
     Route: 048

REACTIONS (3)
  - Drug use disorder [Unknown]
  - Agitation [Unknown]
  - Psychotic disorder [Unknown]
